FAERS Safety Report 5276830-3 (Version None)
Quarter: 2007Q1

REPORT INFORMATION
  Report Type: 
  Country: None (occurrence: None)
  Receive Date: 20070327
  Receipt Date: 20070315
  Transmission Date: 20070707
  Serious: Yes (Disabling)
  Sender: FDA-Public Use
  Company Number: US-JNJFOC-20070304230

PATIENT
  Age: 93 Year
  Sex: Female

DRUGS (1)
  1. RISPERDAL [Suspect]
     Indication: DEMENTIA

REACTIONS (16)
  - ABDOMINAL PAIN UPPER [None]
  - BLINDNESS [None]
  - BLOOD GLUCOSE ABNORMAL [None]
  - DIARRHOEA [None]
  - DISTURBANCE IN SOCIAL BEHAVIOUR [None]
  - DIZZINESS [None]
  - DYSPEPSIA [None]
  - MUSCULOSKELETAL STIFFNESS [None]
  - NAUSEA [None]
  - PARANOIA [None]
  - RESTLESSNESS [None]
  - RHINORRHOEA [None]
  - SALIVARY HYPERSECRETION [None]
  - SOMNOLENCE [None]
  - TREMOR [None]
  - URINARY INCONTINENCE [None]
